FAERS Safety Report 12504295 (Version 1)
Quarter: 2016Q2

REPORT INFORMATION
  Report Type: Spontaneous
  Country: US (occurrence: US)
  Receive Date: 20160628
  Receipt Date: 20160628
  Transmission Date: 20160815
  Serious: No
  Sender: FDA-Public Use
  Company Number: US-PFIZER INC-2016293065

PATIENT

DRUGS (1)
  1. LYRICA [Suspect]
     Active Substance: PREGABALIN
     Indication: DIABETIC NEUROPATHY
     Dosage: 200 MG, 3X/DAY
     Dates: start: 2015

REACTIONS (7)
  - Condition aggravated [Unknown]
  - Drug effect incomplete [Unknown]
  - Pain [Unknown]
  - Peripheral coldness [Unknown]
  - Hypoaesthesia [Unknown]
  - Drug dose omission [Unknown]
  - Prescribed overdose [Unknown]
